FAERS Safety Report 18894359 (Version 1)
Quarter: 2021Q1

REPORT INFORMATION
  Report Type: Spontaneous
  Country: SE (occurrence: SE)
  Receive Date: 20210215
  Receipt Date: 20210215
  Transmission Date: 20210420
  Serious: Yes (Death, Life-Threatening, Other)
  Sender: FDA-Public Use
  Company Number: SE-VELOXIS PHARMACEUTICALS-2021VELSE-000117

PATIENT
  Age: 4 Year
  Sex: Female
  Weight: 17 kg

DRUGS (4)
  1. PREDNISOLON [Suspect]
     Active Substance: PREDNISOLONE
     Indication: LIVER TRANSPLANT
     Dosage: UNK
     Route: 065
     Dates: start: 20190711, end: 20200128
  2. EVEROLIMUS. [Suspect]
     Active Substance: EVEROLIMUS
     Indication: LIVER TRANSPLANT
     Dosage: UNK
     Route: 065
     Dates: start: 20190809, end: 20200128
  3. ENVARSUS XR [Suspect]
     Active Substance: TACROLIMUS
     Indication: LIVER TRANSPLANT
     Dosage: UNK
     Route: 065
     Dates: start: 20190711, end: 20200128
  4. TRAMETINIB [Suspect]
     Active Substance: TRAMETINIB
     Indication: ANGIOSARCOMA
     Dosage: 0.032 MG/KG, QD
     Route: 048
     Dates: start: 20190906, end: 20200128

REACTIONS (9)
  - Haemothorax [Fatal]
  - Malignant neoplasm progression [Unknown]
  - Intra-abdominal haemorrhage [Fatal]
  - Angiosarcoma [Unknown]
  - Metastases to lung [Unknown]
  - Metastases to spleen [Unknown]
  - Product use issue [Unknown]
  - Lymphoproliferative disorder [Not Recovered/Not Resolved]
  - Metastases to liver [Unknown]

NARRATIVE: CASE EVENT DATE: 20200110
